FAERS Safety Report 6402386-5 (Version None)
Quarter: 2009Q4

REPORT INFORMATION
  Report Type: 
  Country: None (occurrence: None)
  Receive Date: 20091015
  Receipt Date: 20090907
  Transmission Date: 20100525
  Serious: Yes (Hospitalization, Other)
  Sender: FDA-Public Use
  Company Number: CO-PFIZER INC-2009262103

PATIENT
  Age: 78 Year

DRUGS (8)
  1. ZOLOFT [Suspect]
     Indication: DEPRESSION
     Dosage: 100 MG, 1X/DAY
     Route: 048
     Dates: start: 20061122
  2. LIPITOR [Suspect]
     Indication: BLOOD CHOLESTEROL INCREASED
     Dosage: 40 MG, 1X/DAY
     Route: 048
     Dates: start: 20080226
  3. AKATINOL [Concomitant]
     Indication: OSTEOPOROSIS
     Dosage: 10 MG, 2X/DAY
     Route: 048
  4. ASPIRIN [Concomitant]
     Indication: COAGULOPATHY
     Dosage: 100 MG, 1X/DAY
     Route: 048
  5. MIRAPEX [Concomitant]
     Indication: EPILEPSY
     Dosage: 0.25 MG, 2X/DAY
     Route: 048
     Dates: start: 20080301
  6. ELTROXIN [Concomitant]
     Indication: THYROID DISORDER
     Dosage: 75 MG, 1X/DAY
  7. FOSAMAX [Concomitant]
     Indication: OSTEOPOROSIS
     Dosage: 70 MG, WEEKLY
     Dates: start: 20070101
  8. RIVOTRIL [Concomitant]
     Dosage: 2 MG, 1X/DAY

REACTIONS (4)
  - EPILEPSY [None]
  - HAEMATOCHEZIA [None]
  - HAEMORRHAGE [None]
  - RECTAL CANCER [None]
